FAERS Safety Report 10365659 (Version 1)
Quarter: 2014Q3

REPORT INFORMATION
  Report Type: Spontaneous
  Country: SG (occurrence: SG)
  Receive Date: 20140806
  Receipt Date: 20140806
  Transmission Date: 20150326
  Serious: Yes (Other)
  Sender: FDA-Public Use
  Company Number: SG-BAYER-2014-115270

PATIENT
  Age: 15 Year
  Sex: Female

DRUGS (1)
  1. ACETYLSALICYLIC ACID (} 100 MG) [Suspect]
     Active Substance: ASPIRIN
     Dosage: UNK UNK, UNK

REACTIONS (1)
  - Stridor [Unknown]

NARRATIVE: CASE EVENT DATE: 20000101
